FAERS Safety Report 9554659 (Version 2)
Quarter: 2013Q4

REPORT INFORMATION
  Report Type: Report from Study
  Country: DE (occurrence: DE)
  Receive Date: 20130925
  Receipt Date: 20131205
  Transmission Date: 20140711
  Serious: Yes (Hospitalization)
  Sender: FDA-Public Use
  Company Number: DE-ROCHE-1279727

PATIENT
  Age: 52 Year
  Sex: Female
  Weight: 69 kg

DRUGS (3)
  1. BEVACIZUMAB [Suspect]
     Indication: OVARIAN CANCER
     Dosage: LAST DOSE RECEIVED ON 16/AUG/2013 PRIOR TO SAE.
     Route: 042
     Dates: start: 20121114
  2. CARBOPLATIN [Suspect]
     Indication: OVARIAN CANCER
     Dosage: LAST DOSE RECEIVED ON 27/FEB/2013 PRIOR TO SAE. DOSE- AUC 5
     Route: 042
     Dates: start: 20121114
  3. PACLITAXEL [Suspect]
     Indication: OVARIAN CANCER
     Dosage: LAST DOSE RECEIVED ON 27/FEB/2013 PRIOR TO SAE.
     Route: 042
     Dates: start: 20121114

REACTIONS (1)
  - Pyrexia [Recovered/Resolved]
